FAERS Safety Report 24641423 (Version 1)
Quarter: 2024Q4

REPORT INFORMATION
  Report Type: Spontaneous
  Country: CA (occurrence: CA)
  Receive Date: 20241120
  Receipt Date: 20241120
  Transmission Date: 20250114
  Serious: Yes (Other)
  Sender: CSL BEHRING
  Company Number: CA-BEH-2024185373

PATIENT
  Age: 88 Year
  Sex: Male

DRUGS (1)
  1. ALBUMIN HUMAN [Suspect]
     Active Substance: ALBUMIN HUMAN
     Indication: Cardiac failure congestive
     Dosage: 15 ML, QD
     Route: 042

REACTIONS (2)
  - Transfusion-related circulatory overload [Recovered/Resolved]
  - Dyspnoea [Recovered/Resolved]
